FAERS Safety Report 4562999-2 (Version None)
Quarter: 2005Q1

REPORT INFORMATION
  Report Type: 
  Country: None (occurrence: None)
  Receive Date: 20050127
  Receipt Date: 20050118
  Transmission Date: 20050727
  Serious: Yes (Hospitalization)
  Sender: FDA-Public Use
  Company Number: US-ABBOTT-05P-163-0287434-00

PATIENT
  Sex: Male

DRUGS (21)
  1. TARKA [Suspect]
     Indication: DRUG USE FOR UNKNOWN INDICATION
     Dosage: 02/180 MG
     Dates: start: 20050110, end: 20050112
  2. TARKA [Suspect]
     Dosage: 04/240 MG
     Dates: start: 20050113, end: 20050114
  3. LISINOPRIL [Concomitant]
     Indication: DRUG USE FOR UNKNOWN INDICATION
     Dates: start: 20041208, end: 20041221
  4. LISINOPRIL [Concomitant]
     Dates: start: 20041222, end: 20050109
  5. TORSEMIDE [Concomitant]
     Indication: HYPERTENSION
     Dates: start: 20041208, end: 20041214
  6. TORSEMIDE [Concomitant]
     Dates: start: 20041222, end: 20050109
  7. TORSEMIDE [Concomitant]
     Dates: start: 20041217, end: 20041223
  8. CLONIDINE [Concomitant]
     Indication: HYPERTENSION
     Dates: start: 20041215, end: 20041221
  9. CLONIDINE [Concomitant]
     Dates: start: 20041222, end: 20050109
  10. CLONIDINE [Concomitant]
     Dates: start: 20050113, end: 20050113
  11. NIFEDIPINE [Concomitant]
     Indication: HYPERTENSION
     Dates: start: 20030101, end: 20041207
  12. TERAZOSIN [Concomitant]
     Indication: HYPERTENSION
     Dates: start: 20030101, end: 20041207
  13. LOVASTATIN [Concomitant]
     Indication: HYPERLIPIDAEMIA
     Dates: start: 19980101
  14. ISOPHANE INSULIN [Concomitant]
     Indication: DIABETES MELLITUS
     Dosage: 20 UNITS IN AM, 8-15 UNITS IN PM
     Dates: start: 19940101
  15. CLONAZEPAM [Concomitant]
     Indication: INSOMNIA
     Dates: start: 20030601
  16. POTASSIUM CHLORIDE [Concomitant]
     Indication: HYPOKALAEMIA
     Dates: start: 19980101, end: 20041207
  17. POTASSIUM CHLORIDE [Concomitant]
     Indication: HYPERTENSION
  18. METOPROLOL [Concomitant]
     Indication: HYPERTENSION
     Dates: start: 19960101, end: 20041207
  19. FUROSEMIDE [Concomitant]
     Indication: HYPERTENSION
     Dates: start: 19980101, end: 20041207
  20. OMEPRAZOLE [Concomitant]
     Indication: DRUG USE FOR UNKNOWN INDICATION
     Dates: start: 20040601
  21. LISINOPRIL [Concomitant]
     Indication: HYPERTENSION
     Dates: start: 20010101, end: 20041207

REACTIONS (3)
  - CHEST PAIN [None]
  - NAUSEA [None]
  - VOMITING [None]
